FAERS Safety Report 15425356 (Version 3)
Quarter: 2019Q1

REPORT INFORMATION
  Report Type: Spontaneous
  Country: US (occurrence: US)
  Receive Date: 20180925
  Receipt Date: 20190204
  Transmission Date: 20190417
  Serious: Yes (Hospitalization, Other)
  Sender: FDA-Public Use
  Company Number: US-OTSUKA-2018_029180

PATIENT
  Sex: Female

DRUGS (7)
  1. ABILIFY [Suspect]
     Active Substance: ARIPIPRAZOLE
     Indication: AGITATION
  2. ABILIFY [Suspect]
     Active Substance: ARIPIPRAZOLE
     Indication: IRRITABILITY
  3. ABILIFY [Suspect]
     Active Substance: ARIPIPRAZOLE
     Indication: ANXIETY
  4. ABILIFY [Suspect]
     Active Substance: ARIPIPRAZOLE
     Indication: MAJOR DEPRESSION
  5. ABILIFY [Suspect]
     Active Substance: ARIPIPRAZOLE
     Indication: BIPOLAR DISORDER
     Dosage: 10 MG, QD
     Route: 065
     Dates: start: 20040407, end: 201808
  6. ABILIFY [Suspect]
     Active Substance: ARIPIPRAZOLE
     Indication: ATTENTION DEFICIT/HYPERACTIVITY DISORDER
  7. CLONAZEPAM. [Concomitant]
     Active Substance: CLONAZEPAM
     Indication: PRODUCT USED FOR UNKNOWN INDICATION
     Dosage: UNK
     Route: 065
     Dates: start: 201901

REACTIONS (10)
  - Mental disorder [Unknown]
  - Suicidal ideation [Unknown]
  - Economic problem [Unknown]
  - Gambling disorder [Recovered/Resolved]
  - Compulsive shopping [Unknown]
  - Product use in unapproved indication [Unknown]
  - Gastrointestinal surgery [Unknown]
  - Obsessive-compulsive disorder [Unknown]
  - Eating disorder [Unknown]
  - Suicide attempt [Unknown]

NARRATIVE: CASE EVENT DATE: 20040407
